FAERS Safety Report 9660542 (Version 1)
Quarter: 2013Q4

REPORT INFORMATION
  Report Type: Spontaneous
  Country: FR (occurrence: FR)
  Receive Date: 20131031
  Receipt Date: 20131031
  Transmission Date: 20140711
  Serious: Yes (Hospitalization)
  Sender: FDA-Public Use
  Company Number: FR-BRISTOL-MYERS SQUIBB COMPANY-19637875

PATIENT
  Age: 47 Year
  Sex: Female

DRUGS (1)
  1. COUMADINE [Suspect]
     Route: 048
     Dates: start: 2003

REACTIONS (2)
  - Transient ischaemic attack [Recovering/Resolving]
  - Anticoagulation drug level below therapeutic [Recovering/Resolving]
